FAERS Safety Report 8037372-5 (Version None)
Quarter: 2012Q1

REPORT INFORMATION
  Report Type: 
  Country: None (occurrence: None)
  Receive Date: 20120111
  Receipt Date: 20120106
  Transmission Date: 20120608
  Serious: Yes (Disabling, Other)
  Sender: FDA-Public Use
  Company Number: US-PFIZER INC-2012004965

PATIENT
  Sex: Male
  Weight: 109 kg

DRUGS (10)
  1. LYRICA [Suspect]
     Indication: BURNING SENSATION
  2. DOXEPIN HYDROCHLORIDE [Concomitant]
     Indication: DEPRESSION
     Dosage: UNK
  3. VIAGRA [Concomitant]
     Dosage: UNK
  4. LANTUS [Concomitant]
     Indication: DIABETES MELLITUS
     Dosage: 25 UNITS IN THE MORNING AND 35 UNITS AT NIGHT, 2X/DAY
     Route: 058
  5. METFORMIN [Concomitant]
     Indication: DIABETES MELLITUS
     Dosage: 2000 MG
     Route: 048
  6. LISINOPRIL [Concomitant]
     Indication: RENAL DISORDER
     Dosage: UNK
  7. LYRICA [Suspect]
     Indication: PAIN IN EXTREMITY
     Dosage: 50 MG, 2X/DAY
     Route: 048
     Dates: start: 20100101, end: 20110101
  8. LYRICA [Suspect]
     Indication: PARAESTHESIA
  9. KLONOPIN [Concomitant]
     Indication: DEPRESSION
     Dosage: 2 TO 4 MG, DAILY
     Route: 048
  10. HUMALOG [Concomitant]
     Indication: DIABETES MELLITUS
     Dosage: 15 TO 20 UNITS, 4X/DAY
     Route: 058

REACTIONS (8)
  - AGGRESSION [None]
  - WEIGHT INCREASED [None]
  - PAIN IN EXTREMITY [None]
  - BURNING SENSATION [None]
  - PARAESTHESIA [None]
  - WEIGHT DECREASED [None]
  - ABASIA [None]
  - MIDDLE INSOMNIA [None]
